FAERS Safety Report 9122502 (Version 1)
Quarter: 2013Q1

REPORT INFORMATION
  Report Type: Spontaneous
  Country: SE (occurrence: SE)
  Receive Date: 20130115
  Receipt Date: 20130115
  Transmission Date: 20140127
  Serious: Yes (Hospitalization, Other)
  Sender: FDA-Public Use
  Company Number: SE-RB-PW/020702/351

PATIENT
  Sex: Female

DRUGS (4)
  1. SUBUTEX [Suspect]
     Indication: DRUG DEPENDENCE
     Route: 065
  2. LEVOMEPROMAZINE [Suspect]
     Indication: INSOMNIA
     Dosage: 20-24 MG (FREQUENCY UNKNOWN)
     Route: 065
  3. LEVOMEPROMAZINE [Suspect]
     Indication: DEPRESSION
     Dosage: 20-24 MG (FREQUENCY UNKNOWN)
     Route: 065
  4. NICOTINE [Suspect]
     Indication: PRODUCT USED FOR UNKNOWN INDICATION
     Dosage: SMOKED 15 CIGARETTES PER DAY

REACTIONS (3)
  - Stillbirth [Recovered/Resolved]
  - Foetal heart rate abnormal [Recovered/Resolved]
  - Exposure during pregnancy [Recovered/Resolved]
